FAERS Safety Report 12563808 (Version 3)
Quarter: 2016Q3

REPORT INFORMATION
  Report Type: Report from Study
  Country: AU (occurrence: AU)
  Receive Date: 20160716
  Receipt Date: 20160802
  Transmission Date: 20161109
  Serious: Yes (Hospitalization, Other)
  Sender: FDA-Public Use
  Company Number: AU-009507513-1607AUS006085

PATIENT
  Age: 75 Year
  Sex: Male

DRUGS (5)
  1. PEMBROLIZUMAB. [Suspect]
     Active Substance: PEMBROLIZUMAB
     Dosage: 200 MG, Q3W
     Route: 042
     Dates: start: 20150812, end: 2016
  2. EPOETIN [Concomitant]
     Active Substance: ERYTHROPOIETIN
     Indication: RENAL FAILURE
  3. INFLUENZA VIRUS VACCINE (UNSPECIFIED) [Suspect]
     Active Substance: INFLUENZA VIRUS VACCINE
     Dosage: UNK
     Dates: start: 20160520, end: 20160520
  4. PEMBROLIZUMAB. [Suspect]
     Active Substance: PEMBROLIZUMAB
     Dosage: 200 MG, Q3W
     Route: 042
     Dates: start: 20160525, end: 20160525
  5. TEMAZEPAM. [Concomitant]
     Active Substance: TEMAZEPAM

REACTIONS (12)
  - Autoimmune nephritis [Recovered/Resolved]
  - Nasopharyngitis [Recovered/Resolved]
  - Acute kidney injury [Recovered/Resolved]
  - Neuralgia [Recovered/Resolved]
  - Confusional state [Recovered/Resolved]
  - Lumbar spinal stenosis [Recovered/Resolved]
  - Arthropathy [Recovered/Resolved]
  - Polyneuropathy [Recovered/Resolved]
  - Encephalitis [Recovered/Resolved]
  - Adrenal insufficiency [Not Recovered/Not Resolved]
  - Myositis [Recovered/Resolved]
  - Lymphocytic hypophysitis [Not Recovered/Not Resolved]

NARRATIVE: CASE EVENT DATE: 20160526
